FAERS Safety Report 11203462 (Version 1)
Quarter: 2015Q2

REPORT INFORMATION
  Report Type: Spontaneous
  Country: US (occurrence: US)
  Receive Date: 20150619
  Receipt Date: 20150619
  Transmission Date: 20150821
  Serious: Yes (Hospitalization)
  Sender: FDA-Public Use
  Company Number: US-AMGEN-USASP2015060370

PATIENT
  Age: 78 Year
  Sex: Male

DRUGS (2)
  1. KYPROLIS [Suspect]
     Active Substance: CARFILZOMIB
     Indication: PLASMA CELL MYELOMA
     Dosage: UNK, TWICE WEEKLY
     Route: 042
     Dates: start: 201501, end: 20150528
  2. FLOMAX [Concomitant]
     Active Substance: TAMSULOSIN HYDROCHLORIDE
     Dosage: UNK

REACTIONS (5)
  - Sepsis [Not Recovered/Not Resolved]
  - Immunoglobulins abnormal [Not Recovered/Not Resolved]
  - Abdominal pain upper [Unknown]
  - Light chain analysis abnormal [Not Recovered/Not Resolved]
  - Blood immunoglobulin G [Not Recovered/Not Resolved]

NARRATIVE: CASE EVENT DATE: 2015
